FAERS Safety Report 16002585 (Version 1)
Quarter: 2019Q1

REPORT INFORMATION
  Report Type: Spontaneous
  Country: US (occurrence: US)
  Receive Date: 20190225
  Receipt Date: 20190225
  Transmission Date: 20190418
  Serious: No
  Sender: FDA-Public Use
  Company Number: US-SA-2019SA045830

PATIENT
  Sex: Male

DRUGS (1)
  1. DUPIXENT [Suspect]
     Active Substance: DUPILUMAB
     Indication: DERMATITIS ATOPIC
     Dosage: 300 MG, QOW
     Route: 058
     Dates: start: 20181031

REACTIONS (6)
  - Nail cuticle fissure [Unknown]
  - Skin mass [Unknown]
  - Rash [Unknown]
  - Injection site pain [Recovered/Resolved]
  - Dermatitis [Unknown]
  - Dry skin [Unknown]
